FAERS Safety Report 17164450 (Version 1)
Quarter: 2019Q4

REPORT INFORMATION
  Report Type: Spontaneous
  Country: AT (occurrence: AT)
  Receive Date: 20191217
  Receipt Date: 20191217
  Transmission Date: 20200122
  Serious: Yes (Hospitalization)
  Sender: FDA-Public Use
  Company Number: AT-MYLANLABS-2019M1123139

PATIENT
  Age: 38 Year
  Sex: Female

DRUGS (1)
  1. ESCITALOPRAM [Suspect]
     Active Substance: ESCITALOPRAM OXALATE
     Indication: BLOOD PRESSURE FLUCTUATION
     Dosage: UNK
     Route: 065
     Dates: start: 20190723, end: 20190726

REACTIONS (4)
  - Burning sensation [Recovered/Resolved]
  - Paraesthesia [Recovered/Resolved]
  - Product use in unapproved indication [Unknown]
  - Airway burns [Recovered/Resolved]

NARRATIVE: CASE EVENT DATE: 20190723
